FAERS Safety Report 19958917 (Version 1)
Quarter: 2021Q4

REPORT INFORMATION
  Report Type: Spontaneous
  Country: US (occurrence: US)
  Receive Date: 20211012
  Receipt Date: 20211012
  Transmission Date: 20220303
  Serious: No
  Sender: FDA-Public Use
  Company Number: None

PATIENT

DRUGS (2)
  1. DEXTROSE [Suspect]
     Active Substance: DEXTROSE
  2. ARGATROBAN [Suspect]
     Active Substance: ARGATROBAN

REACTIONS (3)
  - Wrong product stored [None]
  - Intercepted product dispensing error [None]
  - Product appearance confusion [None]
